FAERS Safety Report 9457184 (Version 1)
Quarter: 2013Q3

REPORT INFORMATION
  Report Type: Report from Study
  Country: ZA (occurrence: ZA)
  Receive Date: 20130814
  Receipt Date: 20130814
  Transmission Date: 20140515
  Serious: Yes (Death)
  Sender: FDA-Public Use
  Company Number: ZA-ROCHE-1261329

PATIENT
  Age: 58 Year
  Sex: Female

DRUGS (3)
  1. MIRCERA [Suspect]
     Indication: NEPHROGENIC ANAEMIA
     Route: 058
     Dates: start: 201204, end: 201306
  2. MIRCERA [Suspect]
     Route: 058
     Dates: start: 201106, end: 201204
  3. MIRCERA [Suspect]
     Route: 058
     Dates: start: 201007, end: 201106

REACTIONS (1)
  - Chest discomfort [Fatal]
